FAERS Safety Report 14683092 (Version 2)
Quarter: 2018Q2

REPORT INFORMATION
  Report Type: Spontaneous
  Country: DE (occurrence: DE)
  Receive Date: 20180327
  Receipt Date: 20180403
  Transmission Date: 20180711
  Serious: Yes (Hospitalization)
  Sender: FDA-Public Use
  Company Number: DE-ASTRAZENECA-2018SE36387

PATIENT
  Age: 16 Year
  Sex: Male
  Weight: 58 kg

DRUGS (1)
  1. QUETIAPINE FUMARATE. [Suspect]
     Active Substance: QUETIAPINE FUMARATE
     Indication: GENERALISED ANXIETY DISORDER
     Dosage: 400 MG DAILY NON AZ DRUG
     Route: 048
     Dates: start: 20180226, end: 20180228

REACTIONS (3)
  - Product substitution issue [Recovered/Resolved]
  - Orthostatic intolerance [Recovered/Resolved]
  - Dizziness [Recovered/Resolved]

NARRATIVE: CASE EVENT DATE: 20180226
